FAERS Safety Report 5900025-0 (Version None)
Quarter: 2008Q3

REPORT INFORMATION
  Report Type: 
  Country: None (occurrence: None)
  Receive Date: 20080925
  Receipt Date: 20080925
  Transmission Date: 20090109
  Serious: Yes (Hospitalization)
  Sender: FDA-Public Use
  Company Number: None

PATIENT
  Age: 57 Year
  Sex: Female

DRUGS (1)
  1. GEODON [Suspect]
     Dosage: 120 MG DAILY PO
     Route: 048

REACTIONS (1)
  - CONVULSION [None]
